FAERS Safety Report 20772192 (Version 1)
Quarter: 2022Q2

REPORT INFORMATION
  Report Type: Spontaneous
  Country: US (occurrence: None)
  Receive Date: 20220502
  Receipt Date: 20220502
  Transmission Date: 20220720
  Serious: Yes (Hospitalization)
  Sender: FDA-Public Use
  Company Number: US-MDD US Operations-SUP202204-000900

PATIENT
  Sex: Female

DRUGS (8)
  1. TROKENDI XR [Suspect]
     Active Substance: TOPIRAMATE
     Indication: Migraine
     Dosage: NOT PROVIDED
     Dates: start: 2020
  2. Xanax-XR [Concomitant]
     Dosage: NOT PROVIDED
  3. ZOLOFT [Concomitant]
     Active Substance: SERTRALINE HYDROCHLORIDE
     Dosage: NOT PROVIDED
  4. PLAVIX [Concomitant]
     Active Substance: CLOPIDOGREL BISULFATE
     Dosage: NOT PROVIDED
  5. METOPROLOL [Concomitant]
     Active Substance: METOPROLOL
     Indication: Blood pressure abnormal
     Dosage: NOT PROVIDED
  6. ZETIA [Concomitant]
     Active Substance: EZETIMIBE
     Dosage: NOT PROVIDED
  7. PRALUENT [Concomitant]
     Active Substance: ALIROCUMAB
     Indication: Blood cholesterol abnormal
     Dosage: NOT PROVIDED
  8. PANTOPRAZOLE [Concomitant]
     Active Substance: PANTOPRAZOLE
     Dosage: NOT PROVIDED

REACTIONS (3)
  - Coronary artery bypass [Unknown]
  - Product substitution issue [Unknown]
  - Product dose omission issue [Unknown]

NARRATIVE: CASE EVENT DATE: 20220301
